FAERS Safety Report 6004664-0 (Version None)
Quarter: 2008Q4

REPORT INFORMATION
  Report Type: 
  Country: None (occurrence: None)
  Receive Date: 20081216
  Receipt Date: 20081208
  Transmission Date: 20090506
  Serious: Yes (Death)
  Sender: FDA-Public Use
  Company Number: HU-ABBOTT-08P-076-0491798-00

PATIENT
  Sex: Male

DRUGS (2)
  1. LEUPROLIDE ACETATE [Suspect]
     Indication: PROSTATE CANCER
     Route: 058
  2. ANTI-ANDROGENS [Concomitant]
     Indication: PROSTATE CANCER

REACTIONS (1)
  - COLON CANCER [None]
